FAERS Safety Report 12459024 (Version 1)
Quarter: 2016Q2

REPORT INFORMATION
  Report Type: Spontaneous
  Country: US (occurrence: None)
  Receive Date: 20160610
  Receipt Date: 20160610
  Transmission Date: 20160815
  Serious: Yes (Life-Threatening, Hospitalization)
  Sender: FDA-Public Use
  Company Number: None

PATIENT
  Age: 75 Year
  Sex: Female
  Weight: 68.04 kg

DRUGS (11)
  1. ATORVASTATIN [Concomitant]
     Active Substance: ATORVASTATIN
  2. ZOLDIDEM [Concomitant]
  3. ADVAIR HFA [Concomitant]
     Active Substance: FLUTICASONE PROPIONATE\SALMETEROL XINAFOATE
  4. ALBUTERAL [Concomitant]
     Active Substance: ALBUTEROL
  5. HYDROCHLORTHAZIDE [Concomitant]
  6. COQ10 [Concomitant]
     Active Substance: UBIDECARENONE
  7. OXYGEN. [Concomitant]
     Active Substance: OXYGEN
  8. BYSTOLIC [Concomitant]
     Active Substance: NEBIVOLOL HYDROCHLORIDE
  9. BRILINTA [Suspect]
     Active Substance: TICAGRELOR
     Indication: CORONARY ARTERIAL STENT INSERTION
     Dosage: 1 TABLET TWICE TWICE MOUTH
     Route: 048
     Dates: start: 20150409, end: 20160405
  10. RAMIPRIL. [Concomitant]
     Active Substance: RAMIPRIL
  11. METFORMIN [Concomitant]
     Active Substance: METFORMIN HYDROCHLORIDE

REACTIONS (2)
  - Diarrhoea haemorrhagic [None]
  - Abdominal pain [None]

NARRATIVE: CASE EVENT DATE: 20160330
